FAERS Safety Report 8219898-4 (Version None)
Quarter: 2012Q1

REPORT INFORMATION
  Report Type: 
  Country: None (occurrence: None)
  Receive Date: 20120319
  Receipt Date: 20120307
  Transmission Date: 20120608
  Serious: Yes (Death)
  Sender: FDA-Public Use
  Company Number: US-CELGENEUS-163-21880-12012197

PATIENT
  Sex: Male

DRUGS (4)
  1. FENOFIBRATE [Concomitant]
     Dosage: 160 MILLIGRAM
     Route: 065
  2. REVLIMID [Suspect]
     Dosage: 10 MILLIGRAM
     Route: 048
     Dates: start: 20120105, end: 20120113
  3. RAMIPRIL [Concomitant]
     Dosage: 2.5 MILLIGRAM
     Route: 065
  4. DILTIAZEM [Concomitant]
     Dosage: 240 MILLIGRAM
     Route: 065

REACTIONS (1)
  - MYELODYSPLASTIC SYNDROME [None]
